FAERS Safety Report 10456798 (Version 1)
Quarter: 2014Q3

REPORT INFORMATION
  Report Type: Spontaneous
  Country: BR (occurrence: BR)
  Receive Date: 20140916
  Receipt Date: 20140916
  Transmission Date: 20150326
  Serious: Yes (Other)
  Sender: FDA-Public Use
  Company Number: PHHY2014BR119101

PATIENT
  Sex: Male

DRUGS (1)
  1. DESERILA [Suspect]
     Active Substance: METHYSERGIDE MALEATE
     Indication: CLUSTER HEADACHE

REACTIONS (4)
  - Insomnia [Unknown]
  - Feeling abnormal [Unknown]
  - Suicidal ideation [Unknown]
  - Pain [Unknown]
